FAERS Safety Report 15510262 (Version 1)
Quarter: 2018Q4

REPORT INFORMATION
  Report Type: Spontaneous
  Country: US (occurrence: US)
  Receive Date: 20181017
  Receipt Date: 20181017
  Transmission Date: 20190205
  Serious: No
  Sender: FDA-Public Use
  Company Number: None

PATIENT
  Age: 3 Day
  Sex: Male
  Weight: 3 kg

DRUGS (1)
  1. LIDOCAINE AND PRILOCAINE CREAM [Suspect]
     Active Substance: LIDOCAINE\PRILOCAINE
     Indication: CIRCUMCISION
     Dates: start: 20181013, end: 20181013

REACTIONS (2)
  - Application site oedema [None]
  - Penile oedema [None]

NARRATIVE: CASE EVENT DATE: 20181013
